FAERS Safety Report 25419490 (Version 1)
Quarter: 2025Q2

REPORT INFORMATION
  Report Type: Spontaneous
  Country: US (occurrence: US)
  Receive Date: 20250610
  Receipt Date: 20250610
  Transmission Date: 20250716
  Serious: Yes (Other)
  Sender: ELI LILLY AND COMPANY
  Company Number: US-ELI_LILLY_AND_COMPANY-US202506000200

PATIENT
  Age: 50 Year
  Sex: Female

DRUGS (2)
  1. ZEPBOUND [Suspect]
     Active Substance: TIRZEPATIDE
     Indication: Product used for unknown indication
     Route: 058
  2. ZEPBOUND [Suspect]
     Active Substance: TIRZEPATIDE
     Indication: Product used for unknown indication
     Route: 058

REACTIONS (9)
  - Loss of consciousness [Recovered/Resolved]
  - Dysstasia [Recovered/Resolved]
  - Flatulence [Recovered/Resolved]
  - Asthenia [Recovered/Resolved]
  - Diarrhoea [Recovered/Resolved]
  - Eructation [Recovered/Resolved]
  - Vomiting [Recovered/Resolved]
  - Drug hypersensitivity [Recovered/Resolved]
  - Abdominal pain upper [Recovered/Resolved]
